FAERS Safety Report 8874528 (Version 1)
Quarter: 2012Q4

REPORT INFORMATION
  Report Type: 
  Country: ES (occurrence: ES)
  Receive Date: 20121023
  Receipt Date: 20121023
  Transmission Date: 20130627
  Serious: Yes (Life-Threatening, Hospitalization)
  Sender: FDA-Public Use
  Company Number: PHHY2012ES093195

PATIENT
  Age: 81 Year
  Sex: Male

DRUGS (7)
  1. SINTROM [Suspect]
     Indication: ATRIAL FIBRILLATION
     Dosage: 4 mg, UNK
     Route: 048
     Dates: start: 200703, end: 20110726
  2. SINTROM [Interacting]
     Dosage: UNK UKN, UNK
     Dates: start: 20110810
  3. CITALOPRAM [Interacting]
     Dosage: 30 mg, daily
     Route: 048
     Dates: start: 200810
  4. VOLTAREN [Concomitant]
     Indication: PAIN
     Dosage: 150 mg, UNK
     Route: 048
     Dates: start: 20110712, end: 20110724
  5. TRANGOREX [Concomitant]
     Indication: ATRIAL FIBRILLATION
     Dosage: 200 mg, daily
     Dates: start: 200703
  6. LYRICA [Concomitant]
     Route: 048
     Dates: start: 200905
  7. PAZITAL [Concomitant]
     Route: 048
     Dates: start: 20110713

REACTIONS (9)
  - Gastrointestinal haemorrhage [Recovered/Resolved]
  - Diverticulum [Recovered/Resolved]
  - Haemorrhoids [Recovered/Resolved]
  - White blood cell count increased [Recovered/Resolved]
  - Lymphocyte count decreased [Recovered/Resolved]
  - Haemoglobin decreased [Recovered/Resolved]
  - Haematocrit decreased [Recovered/Resolved]
  - Drug interaction [Unknown]
  - Blood pressure decreased [Recovered/Resolved]
